FAERS Safety Report 8926090 (Version 1)
Quarter: 2012Q4

REPORT INFORMATION
  Report Type: Report from Study
  Country: CA (occurrence: CA)
  Receive Date: 20121126
  Receipt Date: 20121126
  Transmission Date: 20130627
  Serious: No
  Sender: FDA-Public Use
  Company Number: CA-JNJFOC-20121111848

PATIENT
  Age: 51 Year
  Sex: Male
  Weight: 73 kg

DRUGS (4)
  1. REMICADE [Suspect]
     Indication: CROHN^S DISEASE
     Route: 042
     Dates: start: 200404
  2. IMURAN [Concomitant]
     Route: 065
  3. FLAGYL [Concomitant]
     Route: 065
  4. ETIDRONATE [Concomitant]
     Route: 065

REACTIONS (1)
  - Herpes zoster [Recovered/Resolved]
